FAERS Safety Report 8265142-1 (Version None)
Quarter: 2012Q2

REPORT INFORMATION
  Report Type: 
  Country: None (occurrence: None)
  Receive Date: 20120406
  Receipt Date: 20120326
  Transmission Date: 20120825
  Serious: Yes (Hospitalization)
  Sender: FDA-Public Use
  Company Number: GB-ROCHE-1053055

PATIENT
  Sex: Female
  Weight: 85 kg

DRUGS (2)
  1. MABTHERA [Suspect]
     Indication: PRODUCT USED FOR UNKNOWN INDICATION
     Dosage: LAST DOSE PRIOR TO SAE 21/DEC/2010
     Dates: start: 20090429
  2. METHOTREXATE [Concomitant]

REACTIONS (4)
  - VOMITING [None]
  - ABDOMINAL PAIN [None]
  - DIVERTICULITIS [None]
  - CONSTIPATION [None]
